FAERS Safety Report 7017604-2 (Version None)
Quarter: 2010Q3

REPORT INFORMATION
  Report Type: 
  Country: None (occurrence: None)
  Receive Date: 20100909
  Receipt Date: 20100621
  Transmission Date: 20110219
  Serious: No
  Sender: FDA-Public Use
  Company Number: 2010SP035196

PATIENT
  Age: 31 Year
  Sex: Female

DRUGS (7)
  1. SAPHRIS [Suspect]
     Indication: BIPOLAR DISORDER
     Dosage: 10 MG;BID;SL, 10 MG;HS;SL
     Route: 059
     Dates: start: 20100610, end: 20100622
  2. SAPHRIS [Suspect]
     Indication: BIPOLAR DISORDER
     Dosage: 10 MG;BID;SL, 10 MG;HS;SL
     Route: 059
     Dates: start: 20100826
  3. PAXIL (CON.) [Concomitant]
  4. GABAPENTIN (CON.) [Concomitant]
  5. TRILEPTOL (CON.) [Concomitant]
  6. ABILIFY (CON.) [Concomitant]
  7. BENADRYL (CON.) [Concomitant]

REACTIONS (9)
  - CONFUSIONAL STATE [None]
  - EAR DISCOMFORT [None]
  - FEELING ABNORMAL [None]
  - HEADACHE [None]
  - HYPERHIDROSIS [None]
  - INAPPROPRIATE SCHEDULE OF DRUG ADMINISTRATION [None]
  - NIGHT SWEATS [None]
  - PRURITUS GENERALISED [None]
  - VOMITING [None]
